FAERS Safety Report 8237405-7 (Version None)
Quarter: 2012Q1

REPORT INFORMATION
  Report Type: 
  Country: None (occurrence: None)
  Receive Date: 20120327
  Receipt Date: 20120320
  Transmission Date: 20120608
  Serious: Yes (Death, Life-Threatening, Hospitalization, Other)
  Sender: FDA-Public Use
  Company Number: US-ELI_LILLY_AND_COMPANY-US201202000225

PATIENT
  Sex: Male
  Weight: 116 kg

DRUGS (4)
  1. ALIMTA [Suspect]
     Dosage: 936 MG, UNK
     Route: 042
     Dates: start: 20111212
  2. ALIMTA [Suspect]
     Indication: LUNG CARCINOMA CELL TYPE UNSPECIFIED STAGE 0
     Dosage: 500 MG/M2, OTHER
     Route: 042
     Dates: start: 20111101
  3. VITAMIN B-12 [Concomitant]
     Dosage: 1 MG, UNK
  4. FOLIC ACID [Concomitant]

REACTIONS (5)
  - MALIGNANT PLEURAL EFFUSION [None]
  - BLOOD PRESSURE DECREASED [None]
  - RENAL IMPAIRMENT [None]
  - NEOPLASM MALIGNANT [None]
  - CARDIO-RESPIRATORY ARREST [None]
